FAERS Safety Report 24630095 (Version 2)
Quarter: 2024Q4

REPORT INFORMATION
  Report Type: Spontaneous
  Country: NO (occurrence: NO)
  Receive Date: 20241118
  Receipt Date: 20241205
  Transmission Date: 20250115
  Serious: Yes (Life-Threatening, Hospitalization)
  Sender: BOEHRINGER INGELHEIM
  Company Number: None

PATIENT
  Age: 71 Year
  Sex: Female

DRUGS (1)
  1. EMPAGLIFLOZIN [Suspect]
     Active Substance: EMPAGLIFLOZIN
     Indication: Diabetes mellitus
     Dates: start: 20240216, end: 20241030

REACTIONS (4)
  - Conjunctivitis [Recovering/Resolving]
  - Conjunctivitis fungal [Recovering/Resolving]
  - Systemic candida [Recovering/Resolving]
  - Systemic candida [Recovering/Resolving]

NARRATIVE: CASE EVENT DATE: 20240901
